FAERS Safety Report 18634433 (Version 1)
Quarter: 2020Q4

REPORT INFORMATION
  Report Type: Spontaneous
  Country: US (occurrence: US)
  Receive Date: 20201218
  Receipt Date: 20201218
  Transmission Date: 20210114
  Serious: Yes (Other)
  Sender: FDA-Public Use
  Company Number: US-LUPIN PHARMACEUTICALS INC.-2020-10319

PATIENT
  Sex: Male

DRUGS (1)
  1. ALBUTEROL SULFATE INHALATION AEROSOL, 90 MCG/ACTUATION [Suspect]
     Active Substance: ALBUTEROL SULFATE
     Indication: ASTHMA
     Dosage: UNK
     Dates: start: 202011, end: 20201207

REACTIONS (3)
  - Device delivery system issue [Unknown]
  - Device malfunction [Unknown]
  - Wheezing [Unknown]

NARRATIVE: CASE EVENT DATE: 202012
